FAERS Safety Report 16988211 (Version 1)
Quarter: 2019Q4

REPORT INFORMATION
  Report Type: Report from Study
  Country: IT (occurrence: IT)
  Receive Date: 20191104
  Receipt Date: 20191104
  Transmission Date: 20200122
  Serious: Yes (Other)
  Sender: FDA-Public Use
  Company Number: IT-ROCHE-2451602

PATIENT

DRUGS (2)
  1. RITUXIMAB. [Suspect]
     Active Substance: RITUXIMAB
     Route: 041
  2. RITUXIMAB. [Suspect]
     Active Substance: RITUXIMAB
     Indication: NEUROMYELITIS OPTICA SPECTRUM DISORDER
     Route: 041

REACTIONS (8)
  - Syncope [Unknown]
  - Rash [Unknown]
  - Intentional product use issue [Unknown]
  - Dyspnoea [Unknown]
  - Urinary tract infection [Unknown]
  - Off label use [Unknown]
  - Respiratory tract infection [Unknown]
  - Neutropenia [Unknown]
